FAERS Safety Report 20841550 (Version 1)
Quarter: 2022Q2

REPORT INFORMATION
  Report Type: Spontaneous
  Country: TN (occurrence: TN)
  Receive Date: 20220518
  Receipt Date: 20220518
  Transmission Date: 20220720
  Serious: Yes (Other)
  Sender: FDA-Public Use
  Company Number: TN-MACLEODS PHARMACEUTICALS US LTD-MAC2022035604

PATIENT

DRUGS (3)
  1. TRIAMCINOLONE ACETONIDE [Suspect]
     Active Substance: TRIAMCINOLONE ACETONIDE
     Indication: Product used for unknown indication
     Dosage: 4 MILLIGRAM, SINGLE (INJECTION)
  2. POVIDONE-IODINE [Concomitant]
     Active Substance: POVIDONE-IODINE
     Indication: Infection prophylaxis
     Dosage: UNK
     Route: 065
  3. BENOXINATE [Concomitant]
     Active Substance: BENOXINATE
     Indication: Local anaesthesia
     Dosage: 0.4 %
     Route: 065

REACTIONS (1)
  - Non-infectious endophthalmitis [Recovered/Resolved]
